FAERS Safety Report 10488184 (Version 2)
Quarter: 2014Q4

REPORT INFORMATION
  Report Type: Spontaneous
  Country: CM (occurrence: CM)
  Receive Date: 20141002
  Receipt Date: 20141002
  Transmission Date: 20150528
  Serious: Yes (Other)
  Sender: FDA-Public Use
  Company Number: CM-ROCHE-1466167

PATIENT
  Sex: Male

DRUGS (1)
  1. PEGASYS [Suspect]
     Active Substance: PEGINTERFERON ALFA-2A
     Indication: HEPATITIS C
     Route: 058

REACTIONS (4)
  - Mental disorder [Unknown]
  - Asthenia [Unknown]
  - Anaemia [Unknown]
  - Libido disorder [Unknown]
